FAERS Safety Report 17840594 (Version 1)
Quarter: 2020Q2

REPORT INFORMATION
  Report Type: Spontaneous
  Country: FR (occurrence: FR)
  Receive Date: 20200529
  Receipt Date: 20200529
  Transmission Date: 20200714
  Serious: Yes (Congenital Anomaly, Other)
  Sender: FDA-Public Use
  Company Number: FR-BRISTOL-MYERS SQUIBB COMPANY-BMS-2020-039200

PATIENT
  Age: 0 Day
  Sex: Female
  Weight: 2.93 kg

DRUGS (2)
  1. HEPARINE CHOAY [Interacting]
     Active Substance: HEPARIN SODIUM
     Indication: PRODUCT USED FOR UNKNOWN INDICATION
     Dosage: 400 INTERNATIONAL UNIT/KILOGRAM, QD
     Route: 064
  2. COUMADINE [Suspect]
     Active Substance: WARFARIN SODIUM
     Indication: PRODUCT USED FOR UNKNOWN INDICATION
     Dosage: 6 MILLIGRAM, QD
     Route: 064
     Dates: end: 20200407

REACTIONS (4)
  - Maxillonasal dysplasia [Not Recovered/Not Resolved]
  - Foetal exposure during pregnancy [Unknown]
  - Micrognathia [Not Recovered/Not Resolved]
  - Epiphyseal disorder [Not Recovered/Not Resolved]

NARRATIVE: CASE EVENT DATE: 20200421
